FAERS Safety Report 6491208-2 (Version None)
Quarter: 2009Q4

REPORT INFORMATION
  Report Type: 
  Country: None (occurrence: None)
  Receive Date: 20091211
  Receipt Date: 20091126
  Transmission Date: 20100525
  Serious: Yes (Other)
  Sender: FDA-Public Use
  Company Number: PHHY2009CZ53817

PATIENT
  Age: 31 Year
  Sex: Female

DRUGS (2)
  1. INTERFERON BETA-1B [Suspect]
     Indication: MULTIPLE SCLEROSIS
     Dosage: UNK
     Dates: start: 20020701
  2. IMURAN [Suspect]
     Indication: MULTIPLE SCLEROSIS
     Dosage: UNK

REACTIONS (8)
  - DRUG EXPOSURE DURING PREGNANCY [None]
  - HYPERTONIC BLADDER [None]
  - INCONTINENCE [None]
  - MICTURITION URGENCY [None]
  - MULTIPLE SCLEROSIS RELAPSE [None]
  - NORMAL NEWBORN [None]
  - POLLAKIURIA [None]
  - URINARY TRACT INFECTION [None]
